FAERS Safety Report 5769287-7 (Version None)
Quarter: 2008Q2

REPORT INFORMATION
  Report Type: 
  Country: None (occurrence: None)
  Receive Date: 20080612
  Receipt Date: 20080318
  Transmission Date: 20081010
  Serious: No
  Sender: FDA-Public Use
  Company Number: US-ABBOTT-08P-163-0443884-00

PATIENT
  Sex: Female
  Weight: 57.204 kg

DRUGS (7)
  1. HUMIRA [Suspect]
     Indication: RHEUMATOID ARTHRITIS
     Dosage: SYRINGE
     Route: 058
     Dates: start: 20050101, end: 20070101
  2. HUMIRA [Suspect]
     Dosage: SYRINGE
     Route: 058
     Dates: start: 20070101, end: 20071201
  3. HUMIRA [Suspect]
     Route: 058
     Dates: start: 20071201
  4. VENLAFAXINE HCL [Concomitant]
     Indication: DEPRESSION
  5. INEGY [Concomitant]
     Indication: BLOOD CHOLESTEROL INCREASED
  6. TRAZODONE HCL [Concomitant]
     Indication: MYALGIA
  7. TRAZODONE HCL [Concomitant]
     Indication: INSOMNIA

REACTIONS (2)
  - DRUG INEFFECTIVE [None]
  - EPISTAXIS [None]
